FAERS Safety Report 18618616 (Version 1)
Quarter: 2020Q4

REPORT INFORMATION
  Report Type: Spontaneous
  Country: US (occurrence: US)
  Receive Date: 20201215
  Receipt Date: 20201215
  Transmission Date: 20210114
  Serious: Yes (Hospitalization)
  Sender: FDA-Public Use
  Company Number: NVSC2020US324100

PATIENT
  Sex: Male
  Weight: 103.42 kg

DRUGS (5)
  1. MYFORTIC [Suspect]
     Active Substance: MYCOPHENOLATE SODIUM
     Indication: PANCREAS TRANSPLANT
     Dosage: 3 DF, QD (2 IN MORNING AND 1 IN NIGHT)
     Route: 048
  2. RAPAMUNE [Suspect]
     Active Substance: SIROLIMUS
     Indication: PANCREAS TRANSPLANT
     Dosage: 1 MG (EVERY MONDAY, WEDNESDAY, FRIDAY) (STARTED 4 OR 5 YEARS AGO)
     Route: 048
  3. PROGRAF [Suspect]
     Active Substance: TACROLIMUS
     Indication: PANCREAS TRANSPLANT
     Dosage: 1 MG, BID (ONE IN THE MORNING AND ONE AT NIGHT)
     Route: 048
  4. MULTI VITAMIN [Concomitant]
     Active Substance: VITAMINS
     Indication: PRODUCT USED FOR UNKNOWN INDICATION
     Dosage: UNK
     Route: 065
  5. MYFORTIC [Suspect]
     Active Substance: MYCOPHENOLATE SODIUM
     Dosage: 1.5 DF, QHS (ONE AND HALF AT NIGHT)
     Route: 065

REACTIONS (7)
  - Oxygen saturation decreased [Unknown]
  - COVID-19 [Unknown]
  - Dizziness postural [Unknown]
  - Product use in unapproved indication [Unknown]
  - Pneumonia pneumococcal [Unknown]
  - Visual acuity reduced [Unknown]
  - Dyspnoea [Unknown]
